FAERS Safety Report 20675169 (Version 3)
Quarter: 2022Q2

REPORT INFORMATION
  Report Type: Report from Study
  Country: IT (occurrence: IT)
  Receive Date: 20220405
  Receipt Date: 20220426
  Transmission Date: 20220720
  Serious: Yes (Other)
  Sender: FDA-Public Use
  Company Number: IT-UCBSA-2022018192

PATIENT
  Sex: Male

DRUGS (5)
  1. ROTIGOTINE [Suspect]
     Active Substance: ROTIGOTINE
     Indication: Parkinson^s disease
     Dosage: 8 MILLIGRAM, ONCE DAILY (QD)
     Route: 062
     Dates: end: 202203
  2. ROTIGOTINE [Suspect]
     Active Substance: ROTIGOTINE
     Dosage: 6 MILLIGRAM, ONCE DAILY (QD)
     Route: 062
     Dates: start: 202203
  3. ROTIGOTINE [Suspect]
     Active Substance: ROTIGOTINE
     Dosage: 4 MILLIGRAM, ONCE DAILY (QD)
     Route: 062
  4. SINEMET [Concomitant]
     Active Substance: CARBIDOPA\LEVODOPA
     Indication: Product used for unknown indication
     Dosage: 100 MILLIGRAM, 3X/DAY (TID)
  5. RIVOTRIL [Concomitant]
     Active Substance: CLONAZEPAM
     Indication: Product used for unknown indication

REACTIONS (6)
  - Hallucination [Not Recovered/Not Resolved]
  - Diabetes mellitus [Unknown]
  - Hypertension [Unknown]
  - Somnambulism [Recovering/Resolving]
  - Screaming [Recovering/Resolving]
  - Product administered at inappropriate site [Unknown]
